FAERS Safety Report 4928666-8 (Version None)
Quarter: 2006Q1

REPORT INFORMATION
  Report Type: 
  Country: None (occurrence: None)
  Receive Date: 20060227
  Receipt Date: 20060227
  Transmission Date: 20060701
  Serious: Yes (Life-Threatening, Other)
  Sender: FDA-Public Use
  Company Number: None

PATIENT
  Sex: Female

DRUGS (1)
  1. NITROGLYCERIN [Suspect]
     Indication: CORONARY ARTERY DISEASE
     Dosage: ONE 10AM   ONE  10PM

REACTIONS (1)
  - CHEST PAIN [None]
